FAERS Safety Report 4653151-0 (Version None)
Quarter: 2005Q2

REPORT INFORMATION
  Report Type: 
  Country: None (occurrence: None)
  Receive Date: 20050502
  Receipt Date: 20050502
  Transmission Date: 20051028
  Serious: Yes (Life-Threatening, Hospitalization)
  Sender: FDA-Public Use
  Company Number: None

PATIENT
  Age: 38 Year
  Sex: Female
  Weight: 60 kg

DRUGS (6)
  1. PERAZINE [Suspect]
     Indication: HIV INFECTION
     Dosage: 100 MG   ONCE A DAY  ORAL
     Route: 048
     Dates: start: 20040901, end: 20050401
  2. PERAZINE [Suspect]
     Indication: SCHIZOAFFECTIVE DISORDER
     Dosage: 100 MG   ONCE A DAY  ORAL
     Route: 048
     Dates: start: 20040901, end: 20050401
  3. EFAVIRENZ [Concomitant]
  4. ZIDOVUDINE [Concomitant]
  5. LAMIFUDINE [Concomitant]
  6. VALPROATE SODIUM [Concomitant]

REACTIONS (4)
  - DELUSION OF REFERENCE [None]
  - HALLUCINATION, AUDITORY [None]
  - PSYCHOTIC DISORDER [None]
  - RHABDOMYOLYSIS [None]
